FAERS Safety Report 6029671-3 (Version None)
Quarter: 2009Q1

REPORT INFORMATION
  Report Type: 
  Country: None (occurrence: None)
  Receive Date: 20090107
  Receipt Date: 20081231
  Transmission Date: 20090719
  Serious: Yes (Other)
  Sender: FDA-Public Use
  Company Number: TR-WYE-H07373608

PATIENT
  Sex: Male
  Weight: 93 kg

DRUGS (2)
  1. TAZOCIN [Suspect]
     Indication: OSTEOMYELITIS
     Route: 042
     Dates: start: 20081209, end: 20081215
  2. CIPRO [Concomitant]
     Indication: OSTEOMYELITIS
     Route: 042
     Dates: start: 20081209

REACTIONS (3)
  - ABDOMINAL DISCOMFORT [None]
  - PANCYTOPENIA [None]
  - PYREXIA [None]
